FAERS Safety Report 9665104 (Version 2)
Quarter: 2013Q4

REPORT INFORMATION
  Report Type: Spontaneous
  Country: US (occurrence: US)
  Receive Date: 20131103
  Receipt Date: 20131211
  Transmission Date: 20140711
  Serious: Yes (Hospitalization, Other)
  Sender: FDA-Public Use
  Company Number: US-ELI_LILLY_AND_COMPANY-US201310008319

PATIENT
  Age: 59 Year
  Sex: Male
  Weight: 120.18 kg

DRUGS (2)
  1. HUMALOG LISPRO [Suspect]
     Indication: TYPE 1 DIABETES MELLITUS
     Route: 058
  2. INSULIN HUMAN [Suspect]
     Indication: TYPE 1 DIABETES MELLITUS
     Route: 065

REACTIONS (4)
  - Myocardial infarction [Unknown]
  - Cardiac enzymes [Unknown]
  - Blood glucose decreased [Unknown]
  - Blood glucose increased [Unknown]
